FAERS Safety Report 8587541-0 (Version None)
Quarter: 2012Q3

REPORT INFORMATION
  Report Type: 
  Country: None (occurrence: None)
  Receive Date: 20120810
  Receipt Date: 20120802
  Transmission Date: 20120928
  Serious: Yes (Other)
  Sender: FDA-Public Use
  Company Number: ES-ALLERGAN-1210618US

PATIENT
  Age: 74 Year
  Sex: Male

DRUGS (1)
  1. OZURDEX [Suspect]
     Indication: MACULAR OEDEMA
     Dosage: 0.7 MG, SINGLE
     Route: 031

REACTIONS (4)
  - INTRAOCULAR PRESSURE INCREASED [None]
  - CORNEAL OEDEMA [None]
  - DEVICE DISLOCATION [None]
  - VISUAL ACUITY REDUCED [None]
